FAERS Safety Report 7232416-2 (Version None)
Quarter: 2011Q1

REPORT INFORMATION
  Report Type: 
  Country: None (occurrence: None)
  Receive Date: 20110119
  Receipt Date: 20110114
  Transmission Date: 20110831
  Serious: No
  Sender: FDA-Public Use
  Company Number: US-PFIZER INC-2011011399

PATIENT

DRUGS (1)
  1. LIPITOR [Suspect]
     Dosage: 40 MG, 1X/DAY
     Dates: start: 20100701

REACTIONS (1)
  - COUGH [None]
